FAERS Safety Report 5754144-2 (Version None)
Quarter: 2008Q2

REPORT INFORMATION
  Report Type: 
  Country: None (occurrence: None)
  Receive Date: 20080530
  Receipt Date: 20080521
  Transmission Date: 20081010
  Serious: Yes (Death)
  Sender: FDA-Public Use
  Company Number: GB-ASTRAZENECA-2008GB00560

PATIENT
  Age: 91 Year
  Sex: Female
  Weight: 44.5 kg

DRUGS (2)
  1. OMEPRAZOLE [Suspect]
     Route: 048
  2. GAVISCON [Suspect]

REACTIONS (2)
  - DEATH [None]
  - DRUG INTERACTION [None]
